FAERS Safety Report 7409032-2 (Version None)
Quarter: 2011Q2

REPORT INFORMATION
  Report Type: 
  Country: None (occurrence: None)
  Receive Date: 20110412
  Receipt Date: 20110331
  Transmission Date: 20111010
  Serious: Yes (Hospitalization)
  Sender: FDA-Public Use
  Company Number: PHHY2011GB26466

PATIENT
  Age: 44 Year
  Sex: Male

DRUGS (6)
  1. AMITRIPTYLINE [Concomitant]
     Dosage: 100 MG, QD
  2. HALOPERIDOL DECANOATE [Suspect]
     Dosage: 100 MG, QW4
  3. LEVOMEPROMAZINE [Concomitant]
     Dosage: 100 MG, QD
  4. BIPERIDEN HYDROCHLORIDE TAB [Concomitant]
     Dosage: 6 MG, QD
  5. DIAZEPAM [Concomitant]
     Dosage: 20 MG, QD
  6. HALOPERIDOL [Concomitant]
     Dosage: 10 MG, QD

REACTIONS (10)
  - ABNORMAL BEHAVIOUR [None]
  - CONFUSIONAL STATE [None]
  - ANXIETY [None]
  - DELUSION [None]
  - DISTURBANCE IN ATTENTION [None]
  - AGITATION [None]
  - MEMORY IMPAIRMENT [None]
  - ANOSOGNOSIA [None]
  - DISORIENTATION [None]
  - DRUG LEVEL INCREASED [None]
